FAERS Safety Report 15552237 (Version 1)
Quarter: 2018Q4

REPORT INFORMATION
  Report Type: Report from Study
  Country: NL (occurrence: NL)
  Receive Date: 20181025
  Receipt Date: 20181025
  Transmission Date: 20190205
  Serious: Yes (Other)
  Sender: FDA-Public Use
  Company Number: NL-MYLANLABS-2018M1078541

PATIENT

DRUGS (2)
  1. AZATHIOPRINE. [Suspect]
     Active Substance: AZATHIOPRINE
     Indication: CARDIOMYOPATHY
     Dosage: 2 MG/KG, QD/PROGRESSIVE STEP DOWN REGIMEN AFTER A MONTH
     Route: 065
  2. PREDNISONE. [Suspect]
     Active Substance: PREDNISONE
     Indication: CARDIOMYOPATHY
     Dosage: 1 MG/KG, QD/PROGRESSIVE STEP DOWN REGIMEN AFTER A MONTH
     Route: 065

REACTIONS (1)
  - Osteonecrosis [Unknown]
